FAERS Safety Report 23656035 (Version 1)
Quarter: 2024Q1

REPORT INFORMATION
  Report Type: Other
  Country: US (occurrence: None)
  Receive Date: 20240321
  Receipt Date: 20240321
  Transmission Date: 20240410
  Serious: No
  Sender: FDA-Public Use
  Company Number: US-ROCHE-3526308

PATIENT
  Age: 50 Year
  Sex: Female
  Weight: 132.57 kg

DRUGS (13)
  1. OCREVUS [Suspect]
     Active Substance: OCRELIZUMAB
     Indication: Relapsing multiple sclerosis
     Dosage: DATE OF TREATMENT WAS 23/OCT/2023, 300MG (2)
     Route: 042
  2. ALPRAZOLAM [Concomitant]
     Active Substance: ALPRAZOLAM
  3. AMLODIPINE [Concomitant]
     Active Substance: AMLODIPINE BESYLATE
  4. DULOXETINE [Concomitant]
     Active Substance: DULOXETINE
  5. AIMOVIG [Concomitant]
     Active Substance: ERENUMAB-AOOE
  6. GABAPENTIN [Concomitant]
     Active Substance: GABAPENTIN
  7. KETOCONAZOLE [Concomitant]
     Active Substance: KETOCONAZOLE
  8. LISINOPRIL [Concomitant]
     Active Substance: LISINOPRIL
  9. MOUNJARO [Concomitant]
     Active Substance: TIRZEPATIDE
  10. PRAVASTATIN SODIUM [Concomitant]
     Active Substance: PRAVASTATIN SODIUM
  11. SERTRALINE [Concomitant]
     Active Substance: SERTRALINE HYDROCHLORIDE
  12. TIZANIDINE [Concomitant]
     Active Substance: TIZANIDINE
  13. TRAZODONE HYDROCHLORIDE [Concomitant]
     Active Substance: TRAZODONE HYDROCHLORIDE

REACTIONS (2)
  - COVID-19 [Recovered/Resolved]
  - Vision blurred [Unknown]

NARRATIVE: CASE EVENT DATE: 20240101
